FAERS Safety Report 21500704 (Version 1)
Quarter: 2022Q4

REPORT INFORMATION
  Report Type: Spontaneous
  Country: US (occurrence: US)
  Receive Date: 20221025
  Receipt Date: 20221025
  Transmission Date: 20230113
  Serious: Yes (Hospitalization, Other)
  Sender: FDA-Public Use
  Company Number: US-MLMSERVICE-20221010-3848606-1

PATIENT
  Age: 34 Year
  Sex: Male

DRUGS (1)
  1. CISATRACURIUM [Suspect]
     Active Substance: CISATRACURIUM
     Indication: Neuromuscular blockade
     Dosage: 1 DOSAGE FORM TOTAL
     Route: 065

REACTIONS (1)
  - Hyperthermia malignant [Recovering/Resolving]
